FAERS Safety Report 8552725-4 (Version None)
Quarter: 2012Q3

REPORT INFORMATION
  Report Type: 
  Country: None (occurrence: None)
  Receive Date: 20120731
  Receipt Date: 20120724
  Transmission Date: 20120928
  Serious: Yes (Other)
  Sender: FDA-Public Use
  Company Number: PHHY2012CA060605

PATIENT
  Sex: Male

DRUGS (4)
  1. EXJADE [Suspect]
     Dosage: 750 MG, UNK
     Route: 048
     Dates: start: 20100727, end: 20100731
  2. EXJADE [Suspect]
     Dosage: 750 MG, UNK
     Route: 048
     Dates: start: 20100814
  3. DESFERAL [Concomitant]
     Dosage: 1.75 G, DAILY
  4. EXJADE [Suspect]
     Route: 048

REACTIONS (12)
  - SWELLING FACE [None]
  - HYPERSENSITIVITY [None]
  - PRURITUS [None]
  - PRURITUS GENERALISED [None]
  - PAIN OF SKIN [None]
  - RASH MACULAR [None]
  - RASH PRURITIC [None]
  - PAIN [None]
  - VOMITING [None]
  - ABDOMINAL PAIN [None]
  - PYREXIA [None]
  - DIZZINESS [None]
